FAERS Safety Report 21015281 (Version 1)
Quarter: 2022Q2

REPORT INFORMATION
  Report Type: Spontaneous
  Country: US (occurrence: US)
  Receive Date: 20220628
  Receipt Date: 20220628
  Transmission Date: 20220720
  Serious: No
  Sender: FDA-Public Use
  Company Number: US-AUROBINDO-AUR-APL-2022-012381

PATIENT
  Sex: Female
  Weight: 56 kg

DRUGS (2)
  1. ZOLPIDEM TARTRATE [Suspect]
     Active Substance: ZOLPIDEM TARTRATE
     Indication: Insomnia
     Dosage: 50 MILLIGRAM
     Route: 048
     Dates: start: 20220314
  2. ZOLPIDEM TARTRATE [Suspect]
     Active Substance: ZOLPIDEM TARTRATE
     Dosage: 50 MILLIGRAM
     Route: 048
     Dates: start: 20220321

REACTIONS (2)
  - Oral mucosal blistering [Unknown]
  - Drug ineffective [Unknown]
